FAERS Safety Report 20559781 (Version 3)
Quarter: 2022Q2

REPORT INFORMATION
  Report Type: Spontaneous
  Country: DE (occurrence: DE)
  Receive Date: 20220307
  Receipt Date: 20220610
  Transmission Date: 20220721
  Serious: Yes (Death, Life-Threatening, Hospitalization, Other)
  Sender: FDA-Public Use
  Company Number: DE-NOVARTISPH-NVSC2022DE052462

PATIENT
  Age: 45 Year
  Sex: Male
  Weight: 65 kg

DRUGS (6)
  1. COSENTYX [Suspect]
     Active Substance: SECUKINUMAB
     Indication: Ankylosing spondylitis
     Dosage: 1 DOSAGE FORM, QMO (150 MG)
     Route: 058
     Dates: start: 2017
  2. COSENTYX [Suspect]
     Active Substance: SECUKINUMAB
     Dosage: UNK
     Route: 065
     Dates: start: 20211030
  3. COSENTYX [Suspect]
     Active Substance: SECUKINUMAB
     Dosage: 1 DOSAGE FORM, QMO (150 MG)
     Route: 058
     Dates: end: 202110
  4. CELEBREX [Concomitant]
     Active Substance: CELECOXIB
     Indication: Pain
     Dosage: 1 DOSAGE FORM, QD (200)
     Route: 065
  5. CELEBREX [Concomitant]
     Active Substance: CELECOXIB
     Indication: Inflammation
  6. PANTOPRAZOLE [Concomitant]
     Active Substance: PANTOPRAZOLE
     Indication: Gastric disorder
     Dosage: 1 DOSAGE FORM, QD (20)
     Route: 065

REACTIONS (20)
  - Sepsis [Fatal]
  - Multiple organ dysfunction syndrome [Fatal]
  - Circulatory collapse [Fatal]
  - Cardiomyopathy [Fatal]
  - Anuria [Fatal]
  - Hepatic failure [Fatal]
  - Metabolic acidosis [Fatal]
  - Leukopenia [Fatal]
  - Pneumonia [Fatal]
  - Tachycardia [Fatal]
  - Respiratory failure [Fatal]
  - Chest pain [Fatal]
  - Dyspnoea [Fatal]
  - Pyrexia [Fatal]
  - C-reactive protein increased [Fatal]
  - Tachypnoea [Fatal]
  - PCO2 increased [Fatal]
  - Septic shock [Fatal]
  - Cardiovascular disorder [Fatal]
  - Nasopharyngitis [Recovered/Resolved]

NARRATIVE: CASE EVENT DATE: 20211107
